FAERS Safety Report 9608601 (Version 2)
Quarter: 2013Q4

REPORT INFORMATION
  Report Type: Spontaneous
  Country: CA (occurrence: CA)
  Receive Date: 20131009
  Receipt Date: 20131113
  Transmission Date: 20140711
  Serious: Yes (Death)
  Sender: FDA-Public Use
  Company Number: CA-PFIZER INC-2013286434

PATIENT
  Age: 71 Year
  Sex: 0

DRUGS (1)
  1. CRIZOTINIB [Suspect]

REACTIONS (1)
  - Death [Fatal]
